FAERS Safety Report 7245598-3 (Version None)
Quarter: 2011Q1

REPORT INFORMATION
  Report Type: 
  Country: None (occurrence: None)
  Receive Date: 20110126
  Receipt Date: 20110121
  Transmission Date: 20110831
  Serious: Yes (Other)
  Sender: FDA-Public Use
  Company Number: US-PFIZER INC-2011015616

PATIENT
  Sex: Female

DRUGS (1)
  1. CHAPSTICK LIP BALM [Suspect]
     Dosage: UNK

REACTIONS (7)
  - RASH [None]
  - CHEILITIS [None]
  - DYSPNOEA [None]
  - THROAT TIGHTNESS [None]
  - PHARYNGEAL OEDEMA [None]
  - ERYTHEMA [None]
  - FEELING COLD [None]
